FAERS Safety Report 9397169 (Version 2)
Quarter: 2013Q4

REPORT INFORMATION
  Report Type: Report from Study
  Country: TR (occurrence: TR)
  Receive Date: 20130712
  Receipt Date: 20131007
  Transmission Date: 20140711
  Serious: Yes (Death, Life-Threatening, Hospitalization)
  Sender: FDA-Public Use
  Company Number: PHHY2013TR073019

PATIENT
  Age: 53 Year
  Sex: Male
  Weight: 72 kg

DRUGS (4)
  1. AFINITOR [Suspect]
     Indication: METASTATIC RENAL CELL CARCINOMA
     Dosage: 10 MG, DAILY
     Route: 048
     Dates: start: 20121203, end: 20130627
  2. CO-DIOVAN [Concomitant]
     Indication: HYPERTENSION
     Dosage: UNK
     Dates: start: 20020101
  3. LIPANTHYL [Concomitant]
     Indication: HYPERLIPIDAEMIA
     Dosage: UNK
     Dates: start: 2001
  4. FAMODIN [Concomitant]
     Indication: PEPTIC ULCER
     Dosage: 40 MG, UNK
     Dates: start: 2012

REACTIONS (3)
  - Pericardial effusion [Fatal]
  - Pneumonitis [Unknown]
  - Pneumonia [Not Recovered/Not Resolved]
